FAERS Safety Report 6377595-4 (Version None)
Quarter: 2009Q3

REPORT INFORMATION
  Report Type: 
  Country: None (occurrence: None)
  Receive Date: 20090923
  Receipt Date: 20090923
  Transmission Date: 20100115
  Serious: No
  Sender: FDA-Public Use
  Company Number: None

PATIENT
  Age: 65 Year
  Sex: Male
  Weight: 92 kg

DRUGS (9)
  1. HYDROMORPHONE [Suspect]
     Indication: PAIN
     Dosage: 0/0.4/10 PCA
     Dates: start: 20081112, end: 20081113
  2. MONKELLUKAST [Concomitant]
  3. NANITIDINE [Concomitant]
  4. VANCOMYCIN [Concomitant]
  5. EPO [Concomitant]
  6. INSULIN [Concomitant]
  7. PHENYLEPHRINE [Concomitant]
  8. MILVINONE [Concomitant]
  9. NICARDIPINE HYDROCHLORIDE [Concomitant]

REACTIONS (2)
  - CREATININE RENAL CLEARANCE DECREASED [None]
  - SEDATION [None]
